FAERS Safety Report 18600424 (Version 1)
Quarter: 2020Q4

REPORT INFORMATION
  Report Type: Spontaneous
  Country: BR (occurrence: BR)
  Receive Date: 20201210
  Receipt Date: 20201210
  Transmission Date: 20210114
  Serious: Yes (Other)
  Sender: FDA-Public Use
  Company Number: BR-PFIZER INC-2020450973

PATIENT
  Age: 3 Year
  Sex: Female
  Weight: 20 kg

DRUGS (2)
  1. MITOXANTRONE HCL [Suspect]
     Active Substance: MITOXANTRONE HYDROCHLORIDE
  2. IDARUBICIN [Suspect]
     Active Substance: IDARUBICIN

REACTIONS (1)
  - Cardiac failure [Unknown]
